FAERS Safety Report 6334536-3 (Version None)
Quarter: 2009Q3

REPORT INFORMATION
  Report Type: 
  Country: None (occurrence: None)
  Receive Date: 20090831
  Receipt Date: 20090821
  Transmission Date: 20100115
  Serious: Yes (Hospitalization)
  Sender: FDA-Public Use
  Company Number: US-AMGEN-QUU361251

PATIENT
  Sex: Female

DRUGS (2)
  1. ENBREL [Suspect]
     Indication: RHEUMATOID ARTHRITIS
     Route: 058
  2. LEFLUNOMIDE [Concomitant]
     Route: 048

REACTIONS (7)
  - BUNION [None]
  - CERVICAL SPINAL STENOSIS [None]
  - FLATULENCE [None]
  - FOOT DEFORMITY [None]
  - HERPES ZOSTER [None]
  - OSTEOARTHRITIS [None]
  - SCAR [None]
